FAERS Safety Report 7763405-7 (Version None)
Quarter: 2011Q3

REPORT INFORMATION
  Report Type: 
  Country: None (occurrence: None)
  Receive Date: 20110920
  Receipt Date: 20110914
  Transmission Date: 20111222
  Serious: Yes (Death, Hospitalization)
  Sender: FDA-Public Use
  Company Number: US-ACTELION-A-US2011-54101

PATIENT

DRUGS (2)
  1. ASPIRIN [Concomitant]
  2. VENTAVIS [Suspect]
     Indication: PULMONARY ARTERIAL HYPERTENSION
     Dosage: UNK
     Route: 055
     Dates: start: 20110720, end: 20110810

REACTIONS (4)
  - DEATH [None]
  - GAIT DISTURBANCE [None]
  - ABDOMINAL DISTENSION [None]
  - MUSCULOSKELETAL PAIN [None]
